FAERS Safety Report 25401421 (Version 6)
Quarter: 2025Q3

REPORT INFORMATION
  Report Type: Spontaneous
  Country: CA (occurrence: CA)
  Receive Date: 20250605
  Receipt Date: 20250731
  Transmission Date: 20251021
  Serious: Yes (Other)
  Sender: PFIZER
  Company Number: CA-PFIZER INC-202500113673

PATIENT
  Age: 74 Year
  Sex: Male

DRUGS (11)
  1. RUXIENCE [Suspect]
     Active Substance: RITUXIMAB-PVVR
     Indication: Rheumatoid arthritis
     Route: 042
     Dates: start: 20231212, end: 20231212
  2. RUXIENCE [Suspect]
     Active Substance: RITUXIMAB-PVVR
     Route: 042
     Dates: start: 20240628
  3. RUXIENCE [Suspect]
     Active Substance: RITUXIMAB-PVVR
     Route: 042
     Dates: start: 20250102
  4. RUXIENCE [Suspect]
     Active Substance: RITUXIMAB-PVVR
     Route: 042
     Dates: start: 20250703
  5. ACETAMINOPHEN [Concomitant]
     Active Substance: ACETAMINOPHEN
  6. CELEBREX [Concomitant]
     Active Substance: CELECOXIB
  7. METHOTREXATE [Concomitant]
     Active Substance: METHOTREXATE
  8. METHOTREXATE [Concomitant]
     Active Substance: METHOTREXATE
  9. CENTRUM ADVANCE 50+ ADULTS [Concomitant]
  10. VITAMIN D NOS [Concomitant]
     Active Substance: CHOLECALCIFEROL\ERGOCALCIFEROL
  11. FOLIC ACID [Concomitant]
     Active Substance: FOLIC ACID

REACTIONS (3)
  - Malignant melanoma [Not Recovered/Not Resolved]
  - Infusion site oedema [Recovering/Resolving]
  - Infusion site extravasation [Unknown]

NARRATIVE: CASE EVENT DATE: 20250703
